FAERS Safety Report 4331911-3 (Version None)
Quarter: 2004Q2

REPORT INFORMATION
  Report Type: 
  Country: None (occurrence: None)
  Receive Date: 20040405
  Receipt Date: 20030318
  Transmission Date: 20050107
  Serious: No
  Sender: FDA-Public Use
  Company Number: US-GLAXOSMITHKLINE-A0400778A

PATIENT
  Age: 12 Year
  Sex: Male

DRUGS (3)
  1. SEREVENT [Suspect]
     Indication: BRONCHITIS
     Dosage: 1PUFF PER DAY
     Route: 055
     Dates: start: 20030317, end: 20030317
  2. ALBUTEROL [Concomitant]
     Route: 055
  3. SINGULAIR [Concomitant]
     Route: 065

REACTIONS (3)
  - CHEST DISCOMFORT [None]
  - COUGH [None]
  - PHARMACEUTICAL PRODUCT COMPLAINT [None]
